FAERS Safety Report 4682234-4 (Version None)
Quarter: 2005Q2

REPORT INFORMATION
  Report Type: 
  Country: None (occurrence: None)
  Receive Date: 20050531
  Receipt Date: 20050519
  Transmission Date: 20051028
  Serious: Yes (Other)
  Sender: FDA-Public Use
  Company Number: 2250051-2005-00204

PATIENT
  Sex: Female

DRUGS (1)
  1. RHOGAM [Suspect]
     Indication: FOETAL DISTRESS SYNDROME
     Dosage: 300 UG

REACTIONS (2)
  - PAIN [None]
  - PYREXIA [None]
